FAERS Safety Report 19809112 (Version 1)
Quarter: 2021Q3

REPORT INFORMATION
  Report Type: Spontaneous
  Country: US (occurrence: US)
  Receive Date: 20210908
  Receipt Date: 20210908
  Transmission Date: 20211014
  Serious: No
  Sender: FDA-Public Use
  Company Number: US-SUNOVION-2021SUN003273

PATIENT
  Age: 22 Year
  Sex: Female

DRUGS (1)
  1. LATUDA [Suspect]
     Active Substance: LURASIDONE HYDROCHLORIDE
     Indication: EATING DISORDER
     Dosage: 120 MG, QD
     Route: 048

REACTIONS (8)
  - Borderline personality disorder [Unknown]
  - Fear [Unknown]
  - Hyperhidrosis [Unknown]
  - Vomiting [Unknown]
  - Nausea [Unknown]
  - Emotional disorder [Unknown]
  - Off label use [Unknown]
  - Dizziness [Unknown]
